FAERS Safety Report 20526532 (Version 1)
Quarter: 2022Q1

REPORT INFORMATION
  Report Type: Spontaneous
  Country: US (occurrence: US)
  Receive Date: 20220228
  Receipt Date: 20220228
  Transmission Date: 20220423
  Serious: No
  Sender: FDA-Public Use
  Company Number: US-PFIZER INC-202100935770

PATIENT
  Age: 68 Year
  Sex: Male
  Weight: 78.47 kg

DRUGS (2)
  1. VFEND [Suspect]
     Active Substance: VORICONAZOLE
     Indication: Fungal infection
     Dosage: 200 MG, 2X/DAY (200MG TABLET. 1 TABLET BY MOUTH ONCE IN THE MORNING AND ONCE IN THE EVENING)
     Route: 048
     Dates: start: 202105, end: 2021
  2. VFEND [Suspect]
     Active Substance: VORICONAZOLE
     Indication: Haemoptysis

REACTIONS (1)
  - Rash [Recovered/Resolved]

NARRATIVE: CASE EVENT DATE: 20210501
